FAERS Safety Report 4461439-1 (Version None)
Quarter: 2004Q3

REPORT INFORMATION
  Report Type: 
  Country: None (occurrence: None)
  Receive Date: 20040917
  Receipt Date: 20040903
  Transmission Date: 20050211
  Serious: Yes (Hospitalization, Other)
  Sender: FDA-Public Use
  Company Number: 601447

PATIENT
  Age: 48 Year
  Sex: Female
  Weight: 131.5431 kg

DRUGS (5)
  1. GAMMAGARD S/D [Suspect]
     Indication: HYPOGAMMAGLOBULINAEMIA
     Dosage: 55 GM; Q3W; INTRAVENOUS
     Route: 042
     Dates: start: 20040101, end: 20040819
  2. GAMMAGARD S/D [Suspect]
  3. GAMMAGARD S/D [Suspect]
  4. GAMMAGARD S/D [Suspect]
  5. PREDNISONE [Concomitant]

REACTIONS (5)
  - ASTHMA [None]
  - BLOOD PRESSURE DECREASED [None]
  - CHILLS [None]
  - HEART RATE INCREASED [None]
  - PALLOR [None]
